FAERS Safety Report 20323578 (Version 3)
Quarter: 2022Q1

REPORT INFORMATION
  Report Type: Spontaneous
  Country: US (occurrence: US)
  Receive Date: 20220111
  Receipt Date: 20220201
  Transmission Date: 20220423
  Serious: Yes (Other)
  Sender: FDA-Public Use
  Company Number: US-ALKERMES INC.-ALK-2022-000110

PATIENT
  Age: 65 Year
  Sex: Male

DRUGS (7)
  1. VIVITROL [Suspect]
     Active Substance: NALTREXONE
     Indication: Alcoholism
     Dosage: 380 MILLIGRAM, QMO
     Route: 030
     Dates: start: 20211130, end: 20211130
  2. VIVITROL [Suspect]
     Active Substance: NALTREXONE
     Dosage: 380 MILLIGRAM, QMO
     Route: 030
     Dates: start: 20211005, end: 20211005
  3. VIVITROL [Suspect]
     Active Substance: NALTREXONE
     Dosage: 380 MILLIGRAM, QMO
     Route: 030
     Dates: start: 20210907, end: 20210907
  4. QUETIAPINE [Concomitant]
     Active Substance: QUETIAPINE
     Indication: Alcoholism
     Dosage: 50 MILLIGRAM
     Route: 065
  5. QUETIAPINE [Concomitant]
     Active Substance: QUETIAPINE
     Indication: Major depression
  6. MIRTAZAPINE [Concomitant]
     Active Substance: MIRTAZAPINE
     Indication: Alcoholism
     Dosage: 15 MILLIGRAM
     Route: 065
  7. MIRTAZAPINE [Concomitant]
     Active Substance: MIRTAZAPINE
     Indication: Major depression

REACTIONS (9)
  - Brain injury [Not Recovered/Not Resolved]
  - Femur fracture [Unknown]
  - Hip arthroplasty [Recovered/Resolved]
  - Depersonalisation/derealisation disorder [Unknown]
  - Disorientation [Unknown]
  - Tooth extraction [Recovered/Resolved]
  - Product dose omission issue [Not Recovered/Not Resolved]
  - Toothache [Unknown]
  - Alcoholism [Unknown]

NARRATIVE: CASE EVENT DATE: 20211201
